FAERS Safety Report 25787506 (Version 1)
Quarter: 2025Q3

REPORT INFORMATION
  Report Type: Spontaneous
  Country: US (occurrence: US)
  Receive Date: 20250910
  Receipt Date: 20250910
  Transmission Date: 20251020
  Serious: No
  Sender: SANOFI AVENTIS
  Company Number: US-SANOFI-02643079

PATIENT
  Sex: Male

DRUGS (1)
  1. FERRLECIT [Suspect]
     Active Substance: SODIUM FERRIC GLUCONATE COMPLEX
     Indication: Mineral supplementation
     Dates: start: 20250827

REACTIONS (5)
  - Muscle tightness [Unknown]
  - Tremor [Unknown]
  - Peripheral swelling [Unknown]
  - Dyspnoea [Unknown]
  - Dizziness [Unknown]

NARRATIVE: CASE EVENT DATE: 20250827
